FAERS Safety Report 6179400-8 (Version None)
Quarter: 2009Q2

REPORT INFORMATION
  Report Type: 
  Country: None (occurrence: None)
  Receive Date: 20090505
  Receipt Date: 20090427
  Transmission Date: 20091009
  Serious: Yes (Life-Threatening, Hospitalization, Disabling, Other)
  Sender: FDA-Public Use
  Company Number: A0775365A

PATIENT
  Age: 15 Year
  Sex: Female
  Weight: 87 kg

DRUGS (4)
  1. LAMICTAL [Suspect]
     Indication: BIPOLAR DISORDER
     Dosage: 50MG TWICE PER DAY
     Route: 048
     Dates: start: 20090201, end: 20090301
  2. UNKNOWN MEDICATION [Concomitant]
  3. CELEXA [Concomitant]
     Dosage: 10MG PER DAY
     Route: 048
     Dates: start: 20081210
  4. SEROQUEL [Concomitant]
     Dates: start: 20090201, end: 20090407

REACTIONS (3)
  - SELF-INJURIOUS IDEATION [None]
  - SUICIDAL IDEATION [None]
  - VIOLENCE-RELATED SYMPTOM [None]
